FAERS Safety Report 21280406 (Version 7)
Quarter: 2025Q4

REPORT INFORMATION
  Report Type: Report from Study
  Country: TH (occurrence: TH)
  Receive Date: 20220901
  Receipt Date: 20251015
  Transmission Date: 20260117
  Serious: Yes (Hospitalization)
  Sender: JOHNSON AND JOHNSON
  Company Number: TH-JNJFOC-20220849070

PATIENT
  Age: 68 Year
  Sex: Male

DRUGS (22)
  1. UPTRAVI [Suspect]
     Active Substance: SELEXIPAG
     Indication: Pulmonary arterial hypertension
     Route: 048
     Dates: start: 20211007
  2. UPTRAVI [Suspect]
     Active Substance: SELEXIPAG
     Dosage: POSTPONE TAKING MEDICINE UNTIL 22-AUG-2022
     Route: 048
     Dates: start: 20211021
  3. UPTRAVI [Suspect]
     Active Substance: SELEXIPAG
     Route: 048
     Dates: start: 20211007
  4. OPSUMIT [Suspect]
     Active Substance: MACITENTAN
     Indication: Pulmonary arterial hypertension
     Route: 048
     Dates: start: 20211007
  5. OPSUMIT [Suspect]
     Active Substance: MACITENTAN
     Dosage: POSTPONE TAKING MEDICINE UNTIL 22-AUG-2022
     Route: 048
     Dates: start: 20211021
  6. OPSUMIT [Suspect]
     Active Substance: MACITENTAN
     Route: 048
  7. XARELTO [Concomitant]
     Active Substance: RIVAROXABAN
     Indication: Product used for unknown indication
  8. POTASSIUM CHLORIDE [Concomitant]
     Active Substance: POTASSIUM CHLORIDE
     Indication: Product used for unknown indication
  9. ATORVASTATIN CALCIUM [Concomitant]
     Active Substance: ATORVASTATIN CALCIUM
     Indication: Product used for unknown indication
  10. CLONAZEPAM [Concomitant]
     Active Substance: CLONAZEPAM
     Indication: Product used for unknown indication
  11. FURETIC [Concomitant]
     Indication: Product used for unknown indication
  12. HYDROCHLOROTHIAZIDE [Concomitant]
     Active Substance: HYDROCHLOROTHIAZIDE
     Indication: Product used for unknown indication
  13. SILATIO [Concomitant]
     Indication: Product used for unknown indication
  14. SAMSCA [Concomitant]
     Active Substance: TOLVAPTAN
     Indication: Product used for unknown indication
  15. VITAMIN B COMPLEX [Concomitant]
     Active Substance: CYANOCOBALAMIN\DEXPANTHENOL\NIACINAMIDE\PYRIDOXINE HYDROCHLORIDE\RIBOFLAVIN 5^-PHOSPHATE SODIUM\THIA
     Indication: Product used for unknown indication
  16. LANSOPRAZOLE [Concomitant]
     Active Substance: LANSOPRAZOLE
     Indication: Product used for unknown indication
  17. HYLES [Concomitant]
     Indication: Product used for unknown indication
  18. SIRIRAJ SOFT CARE PLUS [Concomitant]
     Indication: Product used for unknown indication
     Dosage: 30 G TUBE
  19. REPARIL GEL N [Concomitant]
     Indication: Product used for unknown indication
     Dosage: 40 G TUBE
  20. TOPOXY [Concomitant]
     Indication: Product used for unknown indication
     Dosage: 0.25% TUBE 10 G
  21. TRIAMCINOLONE [Concomitant]
     Active Substance: TRIAMCINOLONE
     Indication: Product used for unknown indication
     Dosage: 0.1% 30G TUBE
  22. ANALGESIC [MENTHOL;METHYL SALICYLATE] [Concomitant]
     Indication: Product used for unknown indication
     Dosage: 30 G TUBE

REACTIONS (5)
  - Blood test abnormal [Recovering/Resolving]
  - Pallor [Recovering/Resolving]
  - Asthenia [Recovering/Resolving]
  - Fall [Not Recovered/Not Resolved]
  - Pneumonia aspiration [Unknown]

NARRATIVE: CASE EVENT DATE: 20220818
